FAERS Safety Report 8450158 (Version 2)
Quarter: 2012Q4

REPORT INFORMATION
  Report Type: 
  Country: US (occurrence: US)
  Receive Date: 20120309
  Receipt Date: 20121015
  Transmission Date: 20130627
  Serious: Yes (Other)
  Sender: FDA-Public Use
  Company Number: US-US-EMD SERONO, INC.-7116793

PATIENT
  Sex: Male

DRUGS (1)
  1. REBIF [Suspect]
     Indication: MULTIPLE SCLEROSIS
     Route: 058
     Dates: start: 20110907

REACTIONS (5)
  - Jaw cyst [Recovered/Resolved]
  - Cognitive disorder [Unknown]
  - Injection site reaction [Unknown]
  - Influenza like illness [Unknown]
  - Gait disturbance [Unknown]
